FAERS Safety Report 24315919 (Version 1)
Quarter: 2024Q3

REPORT INFORMATION
  Report Type: Spontaneous
  Country: AU (occurrence: AU)
  Receive Date: 20240913
  Receipt Date: 20240913
  Transmission Date: 20241017
  Serious: Yes (Hospitalization, Other)
  Sender: RANBAXY
  Company Number: AU-SUN PHARMACEUTICAL INDUSTRIES LTD-2024R1-467326

PATIENT
  Age: 80 Year
  Sex: Male

DRUGS (7)
  1. LENALIDOMIDE [Suspect]
     Active Substance: LENALIDOMIDE
     Indication: Plasma cell myeloma
     Dosage: UNK (15 MILLIGRAM)
     Route: 065
     Dates: start: 20230601, end: 20240427
  2. DEXAMETHASONE [Suspect]
     Active Substance: DEXAMETHASONE
     Indication: Plasma cell myeloma
     Dosage: UNK (20 MILLIGRAM)
     Route: 065
     Dates: start: 20230601, end: 20240424
  3. BORTEZOMIB [Suspect]
     Active Substance: BORTEZOMIB
     Indication: Plasma cell myeloma
     Dosage: UNK (1.75 MILLIGRAM)
     Route: 065
     Dates: start: 20230601, end: 20240424
  4. APIXABAN [Concomitant]
     Active Substance: APIXABAN
     Indication: Product used for unknown indication
     Dosage: UNK (5 MILLIGRAM)
     Route: 065
     Dates: start: 20240227
  5. APIXABAN [Concomitant]
     Active Substance: APIXABAN
     Dosage: UNK (5 MILLIGRAM)
     Route: 065
     Dates: start: 202405
  6. SODIUM CHLORIDE [Concomitant]
     Active Substance: SODIUM CHLORIDE
     Indication: Product used for unknown indication
     Dosage: UNK
     Route: 065
     Dates: start: 20240428
  7. TELMISARTAN [Concomitant]
     Active Substance: TELMISARTAN
     Indication: Product used for unknown indication
     Dosage: UNK (40 MILLIGRAM)
     Route: 065
     Dates: start: 2020

REACTIONS (2)
  - Febrile neutropenia [Recovered/Resolved]
  - Pneumonia [Unknown]

NARRATIVE: CASE EVENT DATE: 20240401
